FAERS Safety Report 11869727 (Version 1)
Quarter: 2015Q4

REPORT INFORMATION
  Report Type: Other
  Country: US (occurrence: US)
  Receive Date: 20151228
  Receipt Date: 20151228
  Transmission Date: 20160305
  Serious: Yes (Hospitalization)
  Sender: FDA-Public Use
  Company Number: US-LUPIN PHARMACEUTICALS INC.-2015-03089

PATIENT
  Age: 44 Year
  Sex: Male

DRUGS (2)
  1. TOPIRAMATE 100 MG [Suspect]
     Active Substance: TOPIRAMATE
     Route: 065
  2. TOPIRAMATE 100 MG [Suspect]
     Active Substance: TOPIRAMATE
     Indication: AFFECTIVE DISORDER
     Route: 065

REACTIONS (1)
  - Hyperammonaemic encephalopathy [Recovered/Resolved]
